FAERS Safety Report 8966800 (Version 3)
Quarter: 2013Q1

REPORT INFORMATION
  Report Type: Spontaneous
  Country: IE (occurrence: IE)
  Receive Date: 20121217
  Receipt Date: 20130201
  Transmission Date: 20140127
  Serious: Yes (Hospitalization, Disabling, Other)
  Sender: FDA-Public Use
  Company Number: IE-BAYER-2012-130031

PATIENT
  Age: 45 Year
  Sex: Female

DRUGS (1)
  1. MIRENA [Suspect]
     Indication: CONTRACEPTION
     Dosage: 20 MCG/24HR, CONT
     Route: 015
     Dates: start: 20110217

REACTIONS (3)
  - Retinal artery occlusion [Recovered/Resolved with Sequelae]
  - Visual acuity reduced [None]
  - Hypercoagulation [None]
